FAERS Safety Report 5238851-6 (Version None)
Quarter: 2007Q1

REPORT INFORMATION
  Report Type: 
  Country: None (occurrence: None)
  Receive Date: 20070215
  Receipt Date: 20070205
  Transmission Date: 20070707
  Serious: Yes (Life-Threatening, Hospitalization)
  Sender: FDA-Public Use
  Company Number: ES-PFIZER INC-2007009522

PATIENT
  Age: 36 Year
  Sex: Male
  Weight: 84 kg

DRUGS (2)
  1. PREVENCOR [Suspect]
     Indication: LIPID METABOLISM DISORDER
     Route: 048
  2. TEGRETOL [Interacting]
     Indication: EPILEPSY
     Route: 048
     Dates: start: 20060815, end: 20060915

REACTIONS (3)
  - AGRANULOCYTOSIS [None]
  - DRUG INTERACTION [None]
  - OTITIS MEDIA [None]
